FAERS Safety Report 7380392-4 (Version None)
Quarter: 2011Q1

REPORT INFORMATION
  Report Type: 
  Country: None (occurrence: None)
  Receive Date: 20110329
  Receipt Date: 20110323
  Transmission Date: 20110831
  Serious: Yes (Hospitalization)
  Sender: FDA-Public Use
  Company Number: BR-ELI_LILLY_AND_COMPANY-BR201102007401

PATIENT
  Age: 66 Year
  Sex: Female
  Weight: 80 kg

DRUGS (20)
  1. DILTIAZEM HCL [Concomitant]
     Indication: ARRHYTHMIA
  2. METFORMIN HCL [Concomitant]
     Indication: DIABETES MELLITUS
     Dates: start: 20080101
  3. PRASUGREL HYDROCHLORIDE [Suspect]
     Dosage: UNK, UNK
     Route: 048
     Dates: start: 20110208
  4. CLEXANE [Concomitant]
     Indication: ACUTE CORONARY SYNDROME
     Dates: start: 20110207, end: 20110211
  5. AMLODIPINE BESYLATE [Concomitant]
     Indication: HYPERTENSION
     Dosage: UNK, UNKNOWN
     Route: 065
  6. EZETIMIBE [Concomitant]
     Indication: DYSLIPIDAEMIA
     Dates: start: 20060101
  7. CLOPIDOGREL [Suspect]
     Dosage: UNK, UNK
     Route: 048
     Dates: start: 20110207
  8. PRASUGREL HYDROCHLORIDE [Suspect]
     Dosage: 10 MG, DAILY (1/D)
     Route: 048
     Dates: start: 20110209
  9. ENALAPRIL MALEATE [Concomitant]
     Indication: HYPERTENSION
     Dosage: UNK, UNKNOWN
     Route: 065
     Dates: start: 20100908
  10. HEPARIN SODIUM [Concomitant]
     Dates: start: 20110208, end: 20110208
  11. GLICLAZIDE [Concomitant]
     Indication: DIABETES MELLITUS
     Dates: start: 20060101
  12. SIMVASTATIN [Concomitant]
     Indication: HYPERTENSION
     Dates: start: 20040101
  13. INSULIN [Concomitant]
     Indication: DIABETES MELLITUS
     Dates: start: 20040101
  14. HYDRALAZINE HCL [Concomitant]
     Indication: HYPERTENSION
     Dates: start: 20040101
  15. MONOCORDIL [Concomitant]
     Dates: start: 20061201
  16. SELOZOK [Concomitant]
     Indication: HYPERTENSION
     Dosage: UNK, UNK
     Dates: start: 20110208, end: 20110211
  17. DIAZEPAM [Concomitant]
     Indication: ANXIETY
     Dates: start: 20110208, end: 20110208
  18. ASPIRIN [Concomitant]
     Indication: ANTIPLATELET THERAPY
     Dates: start: 20040101
  19. HYDROCHLOROTHIAZIDE [Concomitant]
     Indication: HYPERTENSION
     Dates: start: 20070101
  20. RANITIDINE [Concomitant]
     Dates: start: 20100908

REACTIONS (1)
  - ACUTE MYOCARDIAL INFARCTION [None]
